FAERS Safety Report 17409636 (Version 4)
Quarter: 2020Q1

REPORT INFORMATION
  Report Type: Spontaneous
  Country: DE (occurrence: DE)
  Receive Date: 20200212
  Receipt Date: 20200319
  Transmission Date: 20200409
  Serious: Yes (Death, Life-Threatening, Hospitalization)
  Sender: FDA-Public Use
  Company Number: DE-B.I. PHARMACEUTICALS,INC./RIDGEFIELD-2020-BI-008205

PATIENT
  Age: 35 Year
  Sex: Male
  Weight: 160 kg

DRUGS (7)
  1. JARDIANCE [Suspect]
     Active Substance: EMPAGLIFLOZIN
     Indication: TYPE 2 DIABETES MELLITUS
     Route: 048
     Dates: start: 201812
  2. METFORMIN [Concomitant]
     Active Substance: METFORMIN HYDROCHLORIDE
     Route: 065
  3. ATORVASTATIN [Concomitant]
     Active Substance: ATORVASTATIN
     Indication: HYPERLIPIDAEMIA
     Route: 065
  4. METFORMIN [Concomitant]
     Active Substance: METFORMIN HYDROCHLORIDE
     Indication: TYPE 2 DIABETES MELLITUS
     Route: 065
     Dates: start: 201812
  5. TRULICITY [Concomitant]
     Active Substance: DULAGLUTIDE
     Indication: TYPE 2 DIABETES MELLITUS
     Route: 065
  6. JARDIANCE [Suspect]
     Active Substance: EMPAGLIFLOZIN
     Route: 048
  7. DULAGLUTIDE. [Concomitant]
     Active Substance: DULAGLUTIDE
     Indication: TYPE 2 DIABETES MELLITUS
     Route: 065
     Dates: start: 201912

REACTIONS (16)
  - Multiple organ dysfunction syndrome [Fatal]
  - Altered state of consciousness [Unknown]
  - Lactic acidosis [Unknown]
  - Acute respiratory distress syndrome [Unknown]
  - Urinary tract infection [Unknown]
  - Cerebral infarction [Unknown]
  - Acute kidney injury [Unknown]
  - Cardiovascular insufficiency [Unknown]
  - Glycosylated haemoglobin increased [Unknown]
  - Septic shock [Unknown]
  - Thrombocytopenia [Unknown]
  - Pneumonia aspiration [Unknown]
  - Anaemia [Unknown]
  - Hyperglycaemia [Unknown]
  - Hypoxia [Unknown]
  - Brain oedema [Unknown]

NARRATIVE: CASE EVENT DATE: 20191202
